FAERS Safety Report 6756526-9 (Version None)
Quarter: 2010Q2

REPORT INFORMATION
  Report Type: 
  Country: None (occurrence: None)
  Receive Date: 20100604
  Receipt Date: 20100526
  Transmission Date: 20101027
  Serious: Yes (Hospitalization)
  Sender: FDA-Public Use
  Company Number: B0658742A

PATIENT
  Age: 87 Year
  Sex: Female

DRUGS (21)
  1. AUGMENTIN '125' [Suspect]
     Indication: DERMATITIS
     Dosage: 200MG PER DAY
     Route: 042
     Dates: start: 20100320, end: 20100325
  2. VANCOMYCIN [Suspect]
     Indication: DERMATITIS
     Route: 042
     Dates: start: 20100324, end: 20100329
  3. IMIPENEM AND CILASTATIN [Suspect]
     Indication: DERMATITIS
     Dosage: 500MG FOUR TIMES PER DAY
     Route: 042
     Dates: start: 20100324, end: 20100404
  4. GLIBENCLAMIDE [Suspect]
     Indication: DIABETES MELLITUS
     Dosage: 2.5MG TWICE PER DAY
     Route: 048
     Dates: start: 20100320, end: 20100321
  5. ENALAPRIL [Suspect]
     Indication: HYPERTENSION
     Dosage: 5MG TWICE PER DAY
     Route: 048
     Dates: start: 20100328, end: 20100328
  6. FUROSEMIDE [Suspect]
     Dosage: 40MG PER DAY
     Route: 048
     Dates: start: 20100324, end: 20100325
  7. IRBESARTAN [Concomitant]
     Indication: HYPERTENSION
     Dosage: 150MG PER DAY
     Route: 048
     Dates: start: 20100320, end: 20100325
  8. METFORMIN [Concomitant]
     Indication: DIABETES MELLITUS
     Dosage: 500MG TWICE PER DAY
     Route: 048
     Dates: start: 20100320, end: 20100330
  9. SPIRONOLACTONE [Concomitant]
     Dosage: 25MG PER DAY
     Route: 048
     Dates: start: 20100320, end: 20100324
  10. PARACETAMOL [Concomitant]
     Dosage: 1G PER DAY
     Route: 048
     Dates: start: 20100320, end: 20100328
  11. CLINDAMYCIN [Concomitant]
     Indication: DERMATITIS
     Route: 042
     Dates: start: 20100323, end: 20100324
  12. TEICOPLANIN [Concomitant]
     Indication: DERMATITIS
     Dosage: 400MG PER DAY
     Route: 042
     Dates: start: 20100323, end: 20100324
  13. DIPYRONE TAB [Concomitant]
     Indication: PAIN
     Dosage: 500MG PER DAY
     Route: 048
     Dates: start: 20100325, end: 20100325
  14. ACETAZOLAMIDE [Concomitant]
     Route: 048
     Dates: start: 20100327, end: 20100328
  15. FONDAPARINUX SODIUM [Concomitant]
     Dosage: 2.5MG PER DAY
     Route: 058
     Dates: start: 20100326, end: 20100330
  16. ENOXAPARIN SODIUM [Concomitant]
     Route: 058
     Dates: start: 20100322, end: 20100325
  17. TORASEMIDE [Concomitant]
     Dosage: 5MG PER DAY
     Route: 048
     Dates: start: 20100327
  18. GENTAMICIN [Concomitant]
     Indication: DERMATITIS
     Route: 042
     Dates: start: 20100330, end: 20100330
  19. METOPROLOL TARTRATE [Concomitant]
     Indication: HYPERTENSION
     Dosage: 12.5MG FOUR TIMES PER DAY
     Route: 048
     Dates: start: 20100330, end: 20100330
  20. ESOMEPRAZOLE [Concomitant]
     Dosage: 40MG PER DAY
     Route: 048
     Dates: start: 20100331, end: 20100404
  21. AMLODIPINE [Concomitant]
     Indication: HYPERTENSION
     Dosage: 5MG PER DAY
     Route: 048

REACTIONS (1)
  - LINEAR IGA DISEASE [None]
